FAERS Safety Report 7311404-1 (Version None)
Quarter: 2011Q1

REPORT INFORMATION
  Report Type: 
  Country: None (occurrence: None)
  Receive Date: 20110224
  Receipt Date: 20110221
  Transmission Date: 20110831
  Serious: Yes (Hospitalization)
  Sender: FDA-Public Use
  Company Number: GB-PFIZER INC-2006120609

PATIENT
  Age: 54 Year
  Sex: Female

DRUGS (4)
  1. SUNITINIB MALATE [Suspect]
     Indication: RENAL CELL CARCINOMA
     Dosage: 37.5 MG, 1X/DAY
     Route: 048
     Dates: start: 20060713, end: 20060916
  2. ZOLPIDEM [Concomitant]
     Dosage: 10 MG, UNK
     Route: 048
  3. CO-CODAMOL [Concomitant]
     Dosage: 30/500
     Route: 048
  4. IBANDRONIC ACID [Concomitant]
     Dosage: 50 MG, UNK
     Route: 048

REACTIONS (3)
  - PLEURAL EFFUSION [None]
  - CARDIAC FAILURE [None]
  - ASCITES [None]
